FAERS Safety Report 20694864 (Version 4)
Quarter: 2022Q2

REPORT INFORMATION
  Report Type: Report from Study
  Country: US (occurrence: US)
  Receive Date: 20220411
  Receipt Date: 20220512
  Transmission Date: 20220721
  Serious: Yes (Hospitalization)
  Sender: FDA-Public Use
  Company Number: US-NOVARTISPH-NVSC2022US064271

PATIENT
  Age: 81 Year
  Sex: Male
  Weight: 46.893 kg

DRUGS (18)
  1. PLUVICTO [Suspect]
     Active Substance: LUTETIUM LU-177 VIPIVOTIDE TETRAXETAN
     Indication: Hormone-refractory prostate cancer
     Dosage: 200 MCI
     Route: 042
     Dates: start: 20211214
  2. FUROSEMIDE [Concomitant]
     Active Substance: FUROSEMIDE
     Indication: Product used for unknown indication
     Dosage: 20 MG, QD
     Route: 048
  3. FUROSEMIDE [Concomitant]
     Active Substance: FUROSEMIDE
     Dosage: 40 MG, QD
     Route: 048
  4. IRON [Concomitant]
     Active Substance: IRON
     Indication: Product used for unknown indication
     Route: 042
  5. AZITHROMYCIN [Concomitant]
     Active Substance: AZITHROMYCIN
     Indication: Product used for unknown indication
     Dosage: 250 MG, QD
     Route: 065
  6. PREDNISONE [Concomitant]
     Active Substance: PREDNISONE
     Indication: Product used for unknown indication
     Dosage: 10 MG, QD
     Route: 065
  7. LASIX [Concomitant]
     Active Substance: FUROSEMIDE
     Indication: Product used for unknown indication
     Dosage: 40 MG, QD
     Route: 065
  8. AUGMENTIN [Concomitant]
     Active Substance: AMOXICILLIN\CLAVULANATE POTASSIUM
     Indication: Product used for unknown indication
     Dosage: 875-125 BID X 4 DAYS
     Route: 065
  9. DILTIAZEM [Concomitant]
     Active Substance: DILTIAZEM
     Indication: Product used for unknown indication
     Dosage: 180 MG, QD
     Route: 065
  10. SPIRIVA [Concomitant]
     Active Substance: TIOTROPIUM BROMIDE MONOHYDRATE
     Indication: Product used for unknown indication
     Dosage: 2 PUFFS , QD
     Route: 065
  11. DULERA [Concomitant]
     Active Substance: FORMOTEROL FUMARATE DIHYDRATE\MOMETASONE FUROATE
     Indication: Product used for unknown indication
     Dosage: 200/50 MCG, BID
     Route: 065
     Dates: start: 2013
  12. GUAIFENESIN [Concomitant]
     Active Substance: GUAIFENESIN
     Indication: Product used for unknown indication
     Dosage: 400 MG, QD
     Route: 065
  13. MORPHINE [Concomitant]
     Active Substance: MORPHINE
     Indication: Product used for unknown indication
     Dosage: 30 MG, QD
     Route: 065
  14. NORCO [Concomitant]
     Active Substance: ACETAMINOPHEN\HYDROCODONE BITARTRATE
     Indication: Product used for unknown indication
     Dosage: 5-325 MG Q6H PRN
     Route: 065
  15. COMBIVENT [Concomitant]
     Active Substance: ALBUTEROL SULFATE\IPRATROPIUM BROMIDE
     Indication: Product used for unknown indication
     Dosage: UNK, BID
     Route: 065
  16. GABAPENTIN [Concomitant]
     Active Substance: GABAPENTIN
     Indication: Product used for unknown indication
     Dosage: 300 MCI, TID
     Route: 065
  17. OMEPRAZOLE [Concomitant]
     Active Substance: OMEPRAZOLE
     Indication: Product used for unknown indication
     Dosage: 20 MG, QD
     Route: 065
  18. LIDOCAINE [Concomitant]
     Active Substance: LIDOCAINE
     Indication: Product used for unknown indication
     Dosage: PATCH
     Route: 065

REACTIONS (18)
  - Chronic obstructive pulmonary disease [Unknown]
  - Cough [Unknown]
  - Dyspnoea [Unknown]
  - Dyspnoea [Recovered/Resolved]
  - Pneumonia [Unknown]
  - Productive cough [Unknown]
  - Pyrexia [Unknown]
  - Chills [Unknown]
  - Burning sensation [Unknown]
  - Dysphagia [Unknown]
  - Wheezing [Unknown]
  - Ill-defined disorder [Unknown]
  - Atelectasis [Unknown]
  - Pleural effusion [Unknown]
  - Abdominal pain [Unknown]
  - Dizziness [Unknown]
  - Oedema peripheral [Unknown]
  - Nausea [Unknown]

NARRATIVE: CASE EVENT DATE: 20220312
